FAERS Safety Report 5406879-9 (Version None)
Quarter: 2007Q3

REPORT INFORMATION
  Report Type: 
  Country: None (occurrence: None)
  Receive Date: 20070802
  Receipt Date: 20070718
  Transmission Date: 20080115
  Serious: Yes (Life-Threatening, Hospitalization, Other)
  Sender: FDA-Public Use
  Company Number: CHNY2007AU02573

PATIENT
  Age: 34 Year
  Sex: Female

DRUGS (4)
  1. DOCUSATE SODIUM,SENNA GLYCOSIDES (CA SALTS OF PURIFIED SENNA.. (NCH)(D [Suspect]
     Dosage: UP TO 20 PER DAY
  2. COLCHICUM JTL LIQ [Suspect]
  3. PARACETAMOL (NGX)(PARACETAMOL) TABLET [Suspect]
     Dosage: 8 PER DAY
  4. TRAMADOL HCL [Concomitant]

REACTIONS (36)
  - ABDOMINAL PAIN [None]
  - ABDOMINAL TENDERNESS [None]
  - ACIDOSIS [None]
  - ACUTE HEPATIC FAILURE [None]
  - ALANINE AMINOTRANSFERASE INCREASED [None]
  - ALOPECIA [None]
  - ASPARTATE AMINOTRANSFERASE INCREASED [None]
  - BILIARY SEPSIS [None]
  - BLOOD ALKALINE PHOSPHATASE INCREASED [None]
  - BLOOD POTASSIUM DECREASED [None]
  - BODY TEMPERATURE INCREASED [None]
  - BONE MARROW FAILURE [None]
  - CONTINUOUS HAEMODIAFILTRATION [None]
  - GALLBLADDER DISORDER [None]
  - GASTROINTESTINAL SOUNDS ABNORMAL [None]
  - GENERAL PHYSICAL HEALTH DETERIORATION [None]
  - HEPATIC FIBROSIS [None]
  - HEPATIC FUNCTION ABNORMAL [None]
  - HEPATIC NECROSIS [None]
  - HEPATIC STEATOSIS [None]
  - HEPATOMEGALY [None]
  - HYPOTENSION [None]
  - INTERNATIONAL NORMALISED RATIO INCREASED [None]
  - LIVER FUNCTION TEST ABNORMAL [None]
  - LUNG INJURY [None]
  - METABOLIC DISORDER [None]
  - MULTI-ORGAN FAILURE [None]
  - NAUSEA [None]
  - NEUTROPHILIA [None]
  - OVERDOSE [None]
  - PANCYTOPENIA [None]
  - RENAL FAILURE ACUTE [None]
  - SHOCK [None]
  - TACHYCARDIA [None]
  - VOMITING [None]
  - WHITE BLOOD CELL COUNT INCREASED [None]
